FAERS Safety Report 11429157 (Version 1)
Quarter: 2015Q3

REPORT INFORMATION
  Report Type: Spontaneous
  Country: US (occurrence: US)
  Receive Date: 20150828
  Receipt Date: 20150828
  Transmission Date: 20151125
  Serious: No
  Sender: FDA-Public Use
  Company Number: US-ROCHE-1163580

PATIENT
  Sex: Female

DRUGS (4)
  1. RIBAVIRIN. [Suspect]
     Active Substance: RIBAVIRIN
     Indication: CHRONIC HEPATITIS C
     Route: 048
     Dates: start: 20121116
  2. PEGASYS [Suspect]
     Active Substance: PEGINTERFERON ALFA-2A
     Indication: CHRONIC HEPATITIS C
     Route: 058
     Dates: start: 20121116
  3. BOCEPREVIR [Suspect]
     Active Substance: BOCEPREVIR
     Indication: CHRONIC HEPATITIS C
     Route: 065
  4. RIBAVIRIN. [Suspect]
     Active Substance: RIBAVIRIN
     Route: 048

REACTIONS (11)
  - Chills [Unknown]
  - Anaemia [Unknown]
  - Contusion [Unknown]
  - Fatigue [Unknown]
  - Peripheral coldness [Unknown]
  - Rash [Recovering/Resolving]
  - Nasopharyngitis [Unknown]
  - Rhinorrhoea [Unknown]
  - Overdose [Unknown]
  - Depression [Unknown]
  - Asthenia [Unknown]
